FAERS Safety Report 4422778-3 (Version None)
Quarter: 2004Q3

REPORT INFORMATION
  Report Type: 
  Country: None (occurrence: None)
  Receive Date: 20040719
  Receipt Date: 20030821
  Transmission Date: 20050211
  Serious: Yes (Life-Threatening, Hospitalization, Other)
  Sender: FDA-Public Use
  Company Number: M03-INT-080

PATIENT
  Age: 86 Year
  Sex: Female
  Weight: 48 kg

DRUGS (10)
  1. INTEGRILIN [Suspect]
     Indication: CORONARY ANGIOPLASTY
     Dosage: SEE IMAGE
     Route: 040
     Dates: start: 20030722, end: 20030722
  2. INTEGRILIN [Suspect]
     Indication: CORONARY ANGIOPLASTY
     Dosage: SEE IMAGE
     Route: 040
     Dates: start: 20030722, end: 20030723
  3. HEPARIN [Concomitant]
  4. PLAVIX [Concomitant]
  5. ASPIRIN [Concomitant]
  6. ATENOLOL [Concomitant]
  7. DILTIAZEM [Concomitant]
  8. LASIX [Concomitant]
  9. LIPITOR [Concomitant]
  10. PREVACID [Concomitant]

REACTIONS (3)
  - HAEMORRHAGE [None]
  - MOUTH HAEMORRHAGE [None]
  - THROMBOCYTOPENIA [None]
